FAERS Safety Report 18050849 (Version 2)
Quarter: 2021Q3

REPORT INFORMATION
  Report Type: Spontaneous
  Country: CA (occurrence: CA)
  Receive Date: 20200721
  Receipt Date: 20210818
  Transmission Date: 20211014
  Serious: Yes (Other)
  Sender: FDA-Public Use
  Company Number: CA-PFIZER INC-2020118641

PATIENT
  Age: 61 Year
  Sex: Female

DRUGS (2)
  1. XELJANZ [Suspect]
     Active Substance: TOFACITINIB CITRATE
     Indication: COLITIS ULCERATIVE
     Dosage: 10 MG, 2X/DAY
     Route: 048
     Dates: start: 20191214, end: 2020
  2. XELJANZ [Suspect]
     Active Substance: TOFACITINIB CITRATE
     Dosage: 5 MG, 2X/DAY
     Route: 048
     Dates: start: 2020

REACTIONS (4)
  - Rectal haemorrhage [Unknown]
  - Loss of personal independence in daily activities [Unknown]
  - Therapeutic product effect incomplete [Unknown]
  - Colitis [Unknown]
